FAERS Safety Report 15982300 (Version 2)
Quarter: 2019Q1

REPORT INFORMATION
  Report Type: Spontaneous
  Country: CH (occurrence: CH)
  Receive Date: 20190219
  Receipt Date: 20190311
  Transmission Date: 20190418
  Serious: Yes (Hospitalization)
  Sender: FDA-Public Use
  Company Number: CH-BAYER-2019-033172

PATIENT
  Age: 85 Year
  Sex: Female

DRUGS (5)
  1. MERONEM [Concomitant]
     Active Substance: MEROPENEM
     Dosage: UNK
     Dates: start: 201901
  2. XARELTO [Suspect]
     Active Substance: RIVAROXABAN
     Indication: ATRIAL FIBRILLATION
     Dosage: 20 MG
     Dates: start: 20190109, end: 20190111
  3. CORDARONE [Concomitant]
     Active Substance: AMIODARONE HYDROCHLORIDE
     Dosage: UNK
     Dates: end: 201901
  4. ACETYLSALICYLIC ACID (CARDIO) [Suspect]
     Active Substance: ASPIRIN
     Dosage: UNK
     Dates: end: 20190108
  5. ELIQUIS [Concomitant]
     Active Substance: APIXABAN
     Indication: ATRIAL FIBRILLATION

REACTIONS (12)
  - Contusion [None]
  - Haemarthrosis [None]
  - Inflammatory marker increased [None]
  - Superinfection [None]
  - Fall [None]
  - Subcutaneous haematoma [None]
  - Syncope [None]
  - Dyspnoea [None]
  - Arthralgia [None]
  - General physical health deterioration [None]
  - Post-traumatic pain [None]
  - Pyrexia [None]

NARRATIVE: CASE EVENT DATE: 20181228
